FAERS Safety Report 7943808-8 (Version None)
Quarter: 2011Q4

REPORT INFORMATION
  Report Type: 
  Country: None (occurrence: None)
  Receive Date: 20111128
  Receipt Date: 20111115
  Transmission Date: 20120403
  Serious: Yes (Other)
  Sender: FDA-Public Use
  Company Number: PL-ROCHE-1013711

PATIENT
  Sex: Female

DRUGS (4)
  1. RITUXIMAB [Suspect]
     Indication: MANTLE CELL LYMPHOMA
  2. VINCRISTINE [Concomitant]
     Indication: MANTLE CELL LYMPHOMA
  3. PREDNISONE TAB [Concomitant]
     Indication: MANTLE CELL LYMPHOMA
  4. CYCLOPHOSPHAMIDE [Concomitant]
     Indication: MANTLE CELL LYMPHOMA

REACTIONS (3)
  - PANCYTOPENIA [None]
  - OSTEOLYSIS [None]
  - THROMBOCYTOPENIA [None]
